FAERS Safety Report 9914659 (Version 1)
Quarter: 2014Q1

REPORT INFORMATION
  Report Type: Spontaneous
  Country: AU (occurrence: AU)
  Receive Date: 20140220
  Receipt Date: 20140220
  Transmission Date: 20141002
  Serious: Yes (Life-Threatening, Other)
  Sender: FDA-Public Use
  Company Number: AU-ELI_LILLY_AND_COMPANY-AU201402005456

PATIENT
  Sex: Female

DRUGS (4)
  1. OLANZAPINE [Suspect]
     Indication: PRODUCT USED FOR UNKNOWN INDICATION
     Dosage: 10 MG, UNKNOWN
     Route: 064
  2. ASENAPINE MALEATE [Suspect]
     Dosage: 10 MG, UNKNOWN
     Route: 064
  3. RISPERIDONE [Suspect]
     Dosage: 2 MG, UNKNOWN
     Route: 064
  4. DIAZEPAM [Concomitant]
     Indication: PRODUCT USED FOR UNKNOWN INDICATION
     Dosage: 1 DF, UNKNOWN
     Route: 064

REACTIONS (3)
  - Neonatal respiratory distress syndrome [Recovered/Resolved]
  - Streptococcal infection [Recovered/Resolved]
  - Foetal exposure during pregnancy [Recovered/Resolved]
